FAERS Safety Report 13576576 (Version 6)
Quarter: 2017Q3

REPORT INFORMATION
  Report Type: Spontaneous
  Country: US (occurrence: US)
  Receive Date: 20170524
  Receipt Date: 20170829
  Transmission Date: 20171127
  Serious: Yes (Other)
  Sender: FDA-Public Use
  Company Number: US-PFIZER INC-2017225565

PATIENT
  Age: 67 Year
  Sex: Female
  Weight: 86.18 kg

DRUGS (1)
  1. XELJANZ XR [Suspect]
     Active Substance: TOFACITINIB CITRATE
     Indication: RHEUMATOID ARTHRITIS
     Dosage: 11 MG, 1X/DAY
     Route: 048

REACTIONS (9)
  - Condition aggravated [Unknown]
  - Malaise [Unknown]
  - Localised infection [Unknown]
  - Nerve injury [Unknown]
  - Rheumatoid arthritis [Unknown]
  - Gingivitis [Recovered/Resolved]
  - Choking [Unknown]
  - Back injury [Unknown]
  - Cough [Unknown]

NARRATIVE: CASE EVENT DATE: 20170518
